FAERS Safety Report 4308348-6 (Version None)
Quarter: 2004Q1

REPORT INFORMATION
  Report Type: 
  Country: None (occurrence: None)
  Receive Date: 20040301
  Receipt Date: 20031208
  Transmission Date: 20041129
  Serious: Yes (Other)
  Sender: FDA-Public Use
  Company Number: PHBS2003JP13979

PATIENT
  Age: 29 Year
  Sex: Female
  Weight: 57 kg

DRUGS (6)
  1. TEGRETOL [Suspect]
     Indication: ANXIETY
     Dosage: 100 MG/DAY
     Route: 048
     Dates: start: 20031025, end: 20031128
  2. TEGRETOL [Suspect]
     Dosage: 200 MG/DAY
     Route: 048
     Dates: start: 20031128, end: 20031130
  3. LUVOX [Suspect]
     Indication: DEPRESSION
     Dosage: 50 MG/DAY
     Route: 048
     Dates: start: 20020901
  4. TOLEDOMIN [Concomitant]
     Indication: INSOMNIA
     Route: 048
  5. ROHYPNOL [Suspect]
     Dosage: 2 MG/DAY
     Route: 048
     Dates: start: 20031128, end: 20031130
  6. LEXOTAN [Concomitant]
     Dosage: 5 MG/DAY
     Route: 065

REACTIONS (7)
  - FORMICATION [None]
  - HYPOAESTHESIA [None]
  - INSOMNIA [None]
  - LIBIDO DECREASED [None]
  - MUSCULOSKELETAL STIFFNESS [None]
  - SENSORY DISTURBANCE [None]
  - THIRST [None]
